FAERS Safety Report 21745318 (Version 1)
Quarter: 2022Q4

REPORT INFORMATION
  Report Type: Spontaneous
  Country: ES (occurrence: ES)
  Receive Date: 20221219
  Receipt Date: 20221219
  Transmission Date: 20230112
  Serious: Yes (Other)
  Sender: FDA-Public Use
  Company Number: ES-ENDO PHARMACEUTICALS INC-2022-006675

PATIENT
  Age: 33 Year
  Sex: Male

DRUGS (1)
  1. TESTIM [Suspect]
     Active Substance: TESTOSTERONE
     Indication: Gender dysphoria
     Dosage: UNK UNKNOWN, UNKNOWN
     Route: 065

REACTIONS (2)
  - Suicide attempt [Recovered/Resolved]
  - Off label use [Recovered/Resolved]
